FAERS Safety Report 8390773-8 (Version None)
Quarter: 2012Q2

REPORT INFORMATION
  Report Type: 
  Country: None (occurrence: None)
  Receive Date: 20120529
  Receipt Date: 20120524
  Transmission Date: 20120825
  Serious: Yes (Life-Threatening, Hospitalization, Disabling)
  Sender: FDA-Public Use
  Company Number: US-JNJFOC-20120413107

PATIENT
  Sex: Female
  Weight: 52.16 kg

DRUGS (5)
  1. DIGOXIN [Concomitant]
     Indication: ATRIAL FIBRILLATION
  2. TOPROL-XL [Concomitant]
     Indication: ATRIAL FIBRILLATION
  3. PREMARIN [Concomitant]
     Indication: HOT FLUSH
  4. XARELTO [Suspect]
     Indication: ATRIAL FIBRILLATION
     Route: 048
     Dates: start: 20120228, end: 20120412
  5. DILTIAZEM [Concomitant]
     Indication: ATRIAL FIBRILLATION

REACTIONS (1)
  - CEREBROVASCULAR ACCIDENT [None]
